FAERS Safety Report 5637181-8 (Version None)
Quarter: 2008Q1

REPORT INFORMATION
  Report Type: 
  Country: None (occurrence: None)
  Receive Date: 20080225
  Receipt Date: 20080211
  Transmission Date: 20080703
  Serious: Yes (Hospitalization)
  Sender: FDA-Public Use
  Company Number: GB-AMGEN-UK265040

PATIENT
  Sex: Female
  Weight: 71 kg

DRUGS (3)
  1. PANITUMUMAB [Suspect]
     Route: 065
     Dates: start: 20080125
  2. IRINOTECAN [Suspect]
     Dates: start: 20080125
  3. OMEPRAZOLE [Concomitant]

REACTIONS (1)
  - NEUTROPENIC SEPSIS [None]
